FAERS Safety Report 12632415 (Version 3)
Quarter: 2016Q3

REPORT INFORMATION
  Report Type: Spontaneous
  Country: US (occurrence: US)
  Receive Date: 20160808
  Receipt Date: 20160808
  Transmission Date: 20161109
  Serious: No
  Sender: FDA-Public Use
  Company Number: US-BEH-2016062754

PATIENT
  Age: 54 Year
  Sex: Female
  Weight: 74 kg

DRUGS (19)
  1. PRILOSEC [Concomitant]
     Active Substance: OMEPRAZOLE MAGNESIUM
  2. LEVOTHYROXINE. [Concomitant]
     Active Substance: LEVOTHYROXINE
  3. HIZENTRA [Suspect]
     Active Substance: HUMAN IMMUNOGLOBULIN G
     Route: 058
  4. SINGULAIR [Concomitant]
     Active Substance: MONTELUKAST SODIUM
  5. ZOLPIDEM [Concomitant]
     Active Substance: ZOLPIDEM\ZOLPIDEM TARTRATE
  6. MULTIVITAMIN [Concomitant]
     Active Substance: VITAMINS
  7. HYDROCORTISONE. [Concomitant]
     Active Substance: HYDROCORTISONE
  8. DIPHENHYDRAMINE. [Concomitant]
     Active Substance: DIPHENHYDRAMINE
  9. PLAQUENIL [Concomitant]
     Active Substance: HYDROXYCHLOROQUINE SULFATE
  10. LMX [Concomitant]
     Active Substance: LIDOCAINE
  11. CYMBALTA [Concomitant]
     Active Substance: DULOXETINE HYDROCHLORIDE
  12. RITUXAN [Concomitant]
     Active Substance: RITUXIMAB
  13. PREDNISONE. [Concomitant]
     Active Substance: PREDNISONE
  14. EPIPEN [Concomitant]
     Active Substance: EPINEPHRINE
  15. ALPRAZOLAM. [Concomitant]
     Active Substance: ALPRAZOLAM
  16. LYRICA [Concomitant]
     Active Substance: PREGABALIN
  17. OXYGEN. [Concomitant]
     Active Substance: OXYGEN
  18. SUCRALFATE. [Concomitant]
     Active Substance: SUCRALFATE
  19. FOLIC ACID. [Concomitant]
     Active Substance: FOLIC ACID

REACTIONS (1)
  - Urinary tract infection [Unknown]

NARRATIVE: CASE EVENT DATE: 201601
